FAERS Safety Report 10395045 (Version 2)
Quarter: 2017Q1

REPORT INFORMATION
  Report Type: Spontaneous
  Country: AT (occurrence: AT)
  Receive Date: 20140820
  Receipt Date: 20170213
  Transmission Date: 20170428
  Serious: Yes (Life-Threatening, Hospitalization, Other)
  Sender: FDA-Public Use
  Company Number: AT-RANBAXY-2014R1-84258

PATIENT
  Age: 19 Month
  Sex: Female
  Weight: 11 kg

DRUGS (2)
  1. CLARITHROMYCIN. [Concomitant]
     Active Substance: CLARITHROMYCIN
     Indication: RESPIRATORY TRACT INFECTION
     Dosage: UNK
     Route: 065
  2. PARACETAMOL [Suspect]
     Active Substance: ACETAMINOPHEN
     Indication: RESPIRATORY TRACT INFECTION
     Dosage: 100 MG/KG, DAILY
     Route: 048

REACTIONS (2)
  - Hepatotoxicity [Recovered/Resolved]
  - Toxicity to various agents [Recovered/Resolved]
